FAERS Safety Report 16769173 (Version 1)
Quarter: 2019Q3

REPORT INFORMATION
  Report Type: Spontaneous
  Country: FR (occurrence: FR)
  Receive Date: 20190903
  Receipt Date: 20190903
  Transmission Date: 20191005
  Serious: Yes (Other)
  Sender: FDA-Public Use
  Company Number: FR-OTSUKA-2019_028309

PATIENT
  Age: 46 Year
  Sex: Male

DRUGS (3)
  1. EFFEXOR [Concomitant]
     Active Substance: VENLAFAXINE HYDROCHLORIDE
     Indication: PRODUCT USED FOR UNKNOWN INDICATION
     Dosage: 75 MG, UNK
     Route: 048
     Dates: start: 20190111
  2. ABILIFY [Suspect]
     Active Substance: ARIPIPRAZOLE
     Indication: BIPOLAR I DISORDER
     Dosage: 15 MG, QD
     Route: 048
     Dates: start: 20190712
  3. LEXOMIL [Concomitant]
     Active Substance: BROMAZEPAM
     Indication: PRODUCT USED FOR UNKNOWN INDICATION
     Dosage: 1/4-1/4-1/2
     Route: 048
     Dates: start: 20181113

REACTIONS (3)
  - Balance disorder [Recovered/Resolved]
  - Tremor [Recovered/Resolved]
  - Head titubation [Recovered/Resolved]

NARRATIVE: CASE EVENT DATE: 201907
